FAERS Safety Report 9101301 (Version 2)
Quarter: 2013Q1

REPORT INFORMATION
  Report Type: Spontaneous
  Country: US (occurrence: US)
  Receive Date: 20130218
  Receipt Date: 20130227
  Transmission Date: 20140127
  Serious: No
  Sender: FDA-Public Use
  Company Number: US-009507513-1302USA006002

PATIENT
  Sex: Female

DRUGS (1)
  1. AFRIN SEVERE CONGESTION SPRAY WITH MENTHOL [Suspect]
     Indication: PRODUCT USED FOR UNKNOWN INDICATION
     Dosage: 3 DF, UNKNOWN
     Route: 045
     Dates: start: 201208

REACTIONS (3)
  - Nasal discomfort [Unknown]
  - Sneezing [Unknown]
  - Drug ineffective [Unknown]
